FAERS Safety Report 5671328-2 (Version None)
Quarter: 2008Q1

REPORT INFORMATION
  Report Type: 
  Country: None (occurrence: None)
  Receive Date: 20080318
  Receipt Date: 20080307
  Transmission Date: 20080703
  Serious: Yes (Death)
  Sender: FDA-Public Use
  Company Number: AU-PFIZER INC-2007102649

PATIENT
  Sex: Male
  Weight: 70 kg

DRUGS (14)
  1. SUTENT [Suspect]
     Indication: RENAL CELL CARCINOMA
     Route: 048
     Dates: start: 20071026, end: 20071027
  2. MOVICOL [Concomitant]
     Indication: CONSTIPATION
     Route: 048
     Dates: start: 20071024, end: 20071120
  3. DEXAMETHASONE TAB [Concomitant]
     Indication: FATIGUE
     Route: 048
     Dates: start: 20071026, end: 20071120
  4. VANCOMYCIN [Concomitant]
     Indication: WOUND INFECTION
     Route: 042
     Dates: start: 20071026, end: 20071115
  5. AMITRIPTYLINE HCL [Concomitant]
     Route: 048
  6. OXYCONTIN [Concomitant]
     Indication: PAIN
     Route: 048
     Dates: start: 20071024, end: 20071114
  7. PANTOPRAZOLE SODIUM [Concomitant]
     Indication: GASTROOESOPHAGEAL REFLUX DISEASE
     Route: 048
     Dates: start: 20071024, end: 20071120
  8. NILSTAT [Concomitant]
     Indication: CANDIDIASIS
     Route: 048
     Dates: start: 20071024, end: 20071120
  9. COLOXYL WITH SENNA [Concomitant]
     Indication: CONSTIPATION
     Route: 048
     Dates: start: 20071024, end: 20071119
  10. LACTULOSE [Concomitant]
     Indication: CONSTIPATION
     Route: 048
     Dates: start: 20071024, end: 20071119
  11. GABAPENTIN [Concomitant]
     Indication: PAIN
     Route: 048
     Dates: start: 20071024, end: 20071120
  12. PARACETAMOL [Concomitant]
     Indication: PAIN
     Route: 048
     Dates: start: 20071024, end: 20071120
  13. CEFTRIAXONE [Concomitant]
     Indication: INFECTION
     Route: 042
     Dates: start: 20071111, end: 20071116
  14. CLEXANE [Concomitant]
     Indication: DEEP VEIN THROMBOSIS
     Route: 058
     Dates: start: 20071024, end: 20071120

REACTIONS (2)
  - DISEASE PROGRESSION [None]
  - RENAL CELL CARCINOMA [None]
